FAERS Safety Report 7241489-2 (Version None)
Quarter: 2011Q1

REPORT INFORMATION
  Report Type: 
  Country: None (occurrence: None)
  Receive Date: 20110120
  Receipt Date: 20110120
  Transmission Date: 20110831
  Serious: No
  Sender: FDA-Public Use
  Company Number: None

PATIENT
  Sex: Male
  Weight: 135 kg

DRUGS (1)
  1. LISINOPRIL [Suspect]
     Indication: HYPERTENSION
     Dosage: 20MG QD PO
     Route: 048

REACTIONS (3)
  - PAIN [None]
  - PRODUCT SUBSTITUTION ISSUE [None]
  - MUSCLE TWITCHING [None]
